FAERS Safety Report 17080951 (Version 1)
Quarter: 2019Q4

REPORT INFORMATION
  Report Type: Spontaneous
  Country: SE (occurrence: SE)
  Receive Date: 20191127
  Receipt Date: 20191127
  Transmission Date: 20200122
  Serious: Yes (Hospitalization)
  Sender: FDA-Public Use
  Company Number: SE-PFIZER INC-2019504411

PATIENT
  Age: 58 Year
  Sex: Female

DRUGS (12)
  1. ZOPICLONE [Concomitant]
     Active Substance: ZOPICLONE
     Dosage: UNK
     Dates: start: 20181024
  2. ACETYLSALICYLIC ACID [Concomitant]
     Active Substance: ASPIRIN
     Dosage: UNK
     Dates: start: 20180807
  3. PRAMIPEXOLE. [Concomitant]
     Active Substance: PRAMIPEXOLE
     Dosage: UNK
     Dates: start: 20180905
  4. NORVASC [Concomitant]
     Active Substance: AMLODIPINE BESYLATE
     Dosage: UNK
     Dates: start: 20180404
  5. OMEPRAZOLE. [Concomitant]
     Active Substance: OMEPRAZOLE
     Dosage: UNK
     Dates: start: 20180123
  6. LEVAXIN [Concomitant]
     Active Substance: LEVOTHYROXINE SODIUM
     Dosage: UNK
     Dates: start: 20180123
  7. ATORVASTATIN CALCIUM. [Suspect]
     Active Substance: ATORVASTATIN CALCIUM
     Dosage: 80 MG, 1X/DAY
     Route: 048
     Dates: start: 20190618, end: 20190819
  8. GLYTRIN [GLYCERYL TRINITRATE] [Concomitant]
     Dosage: UNK
     Dates: start: 20180807
  9. QUETIAPINE. [Concomitant]
     Active Substance: QUETIAPINE
     Dosage: UNK
     Dates: start: 20190524
  10. BRILIQUE [Concomitant]
     Active Substance: TICAGRELOR
     Dosage: UNK
     Dates: start: 20181011
  11. ATORVASTATIN CALCIUM. [Suspect]
     Active Substance: ATORVASTATIN CALCIUM
     Indication: MYOCARDIAL ISCHAEMIA
     Dosage: 40 MG, 1X/DAY
     Route: 048
     Dates: start: 20180807, end: 20190617
  12. ATARAX [Concomitant]
     Active Substance: HYDROXYZINE HYDROCHLORIDE
     Dosage: UNK
     Dates: start: 20181130

REACTIONS (5)
  - Aspartate aminotransferase increased [Recovered/Resolved]
  - Gamma-glutamyltransferase increased [Recovered/Resolved]
  - Alanine aminotransferase increased [Recovered/Resolved]
  - Blood lactate dehydrogenase increased [Recovered/Resolved]
  - Blood alkaline phosphatase increased [Recovered/Resolved]

NARRATIVE: CASE EVENT DATE: 201908
